FAERS Safety Report 6219895-4 (Version None)
Quarter: 2009Q2

REPORT INFORMATION
  Report Type: 
  Country: None (occurrence: None)
  Receive Date: 20090609
  Receipt Date: 20090601
  Transmission Date: 20091009
  Serious: Yes (Life-Threatening)
  Sender: FDA-Public Use
  Company Number: US-MERCK-0905USA01431

PATIENT
  Age: 47 Year
  Sex: Male

DRUGS (14)
  1. ISENTRESS [Suspect]
     Indication: HIV INFECTION
     Route: 048
     Dates: start: 20090419
  2. TRUVADA [Concomitant]
     Route: 065
  3. PREZISTA [Concomitant]
     Route: 065
  4. NORVIR [Concomitant]
     Route: 065
  5. ACYCLOVIR [Concomitant]
     Route: 065
  6. GARLIC [Concomitant]
     Route: 065
  7. OMEGA-3 MARINE TRIGLYCERIDES [Concomitant]
     Route: 065
  8. ASPIRIN [Concomitant]
     Route: 065
  9. GINSENG (UNSPECIFIED) [Concomitant]
     Route: 065
  10. SELENIUM (UNSPECIFIED) [Concomitant]
     Route: 065
  11. VITAMINS (UNSPECIFIED) [Concomitant]
     Route: 065
  12. GLUCOSAMINE [Concomitant]
     Route: 065
  13. ASCORBIC ACID [Concomitant]
     Route: 065
  14. VITAMIN E [Concomitant]
     Route: 065

REACTIONS (2)
  - MEDICATION RESIDUE [None]
  - VIROLOGIC FAILURE [None]
